FAERS Safety Report 7526981-5 (Version None)
Quarter: 2011Q2

REPORT INFORMATION
  Report Type: 
  Country: None (occurrence: None)
  Receive Date: 20110606
  Receipt Date: 20040722
  Transmission Date: 20111010
  Serious: Yes (Hospitalization)
  Sender: FDA-Public Use
  Company Number: PHFR2004GB02521

PATIENT
  Sex: Female

DRUGS (4)
  1. CLOZAPINE [Suspect]
     Indication: SCHIZOPHRENIA
     Dosage: 300MG/DAY
     Route: 048
     Dates: start: 19990825
  2. CITALOPRAM HYDROBROMIDE [Concomitant]
     Dosage: 20MG/DAY/MANE
  3. ZIMOVANE [Concomitant]
     Dosage: 7.5MG/DAY/NOCTE
     Route: 048
  4. PROCYCLIDINE HYDROCHLORIDE 2MG TAB [Concomitant]
     Dosage: 5 MG, BID
     Route: 048

REACTIONS (2)
  - CYSTITIS [None]
  - URINARY INCONTINENCE [None]
